FAERS Safety Report 12143599 (Version 1)
Quarter: 2016Q1

REPORT INFORMATION
  Report Type: Spontaneous
  Country: AU (occurrence: AU)
  Receive Date: 20160304
  Receipt Date: 20160304
  Transmission Date: 20160526
  Serious: Yes (Other)
  Sender: FDA-Public Use
  Company Number: AU-ACCORD-038502

PATIENT
  Age: 31 Year
  Sex: Male

DRUGS (3)
  1. OXALIPLATIN. [Suspect]
     Active Substance: OXALIPLATIN
     Indication: PANCREATIC CARCINOMA METASTATIC
     Dosage: RECEIVED AS MODIFIED FOLFOX 6 REGIMEN.
  2. FLUOROURACIL. [Suspect]
     Active Substance: FLUOROURACIL
     Indication: PANCREATIC CARCINOMA METASTATIC
     Dosage: RECEIVED AS MODIFIED FOLFOX 6 REGIMEN.
  3. FOLINIC ACID [Suspect]
     Active Substance: LEUCOVORIN
     Indication: PANCREATIC CARCINOMA METASTATIC

REACTIONS (5)
  - Portal venous gas [Unknown]
  - Abdominal sepsis [Unknown]
  - Pneumatosis intestinalis [Unknown]
  - Off label use [Unknown]
  - Intestinal ischaemia [Unknown]
